FAERS Safety Report 7271009-8 (Version None)
Quarter: 2011Q1

REPORT INFORMATION
  Report Type: 
  Country: None (occurrence: None)
  Receive Date: 20110202
  Receipt Date: 20110127
  Transmission Date: 20110831
  Serious: Yes (Other)
  Sender: FDA-Public Use
  Company Number: US-AMGEN-USASP2011000544

PATIENT
  Age: 51 Year
  Sex: Female
  Weight: 62.132 kg

DRUGS (6)
  1. HERCEPTIN [Concomitant]
     Dosage: 200 MG, Q3WK
     Route: 042
     Dates: start: 20080223
  2. SODIUM PHENYLBUTYRATE [Concomitant]
     Dosage: 3 G, Q6H
     Dates: start: 20100129
  3. PROLIA [Suspect]
     Indication: METASTASES TO BONE
  4. TYKERB [Concomitant]
     Dosage: 750 MG, QD
     Route: 048
     Dates: start: 20100210
  5. ARIMIDEX [Concomitant]
     Dosage: 1 MG, QD
     Route: 048
     Dates: start: 20100204
  6. PROLIA [Suspect]
     Indication: BREAST CANCER METASTATIC
     Dosage: 60 MG, Q6MO
     Route: 058
     Dates: start: 20110114

REACTIONS (3)
  - MEDICATION ERROR [None]
  - DRUG LABEL CONFUSION [None]
  - DRUG NAME CONFUSION [None]
